FAERS Safety Report 23655334 (Version 1)
Quarter: 2024Q1

REPORT INFORMATION
  Report Type: Spontaneous
  Country: IT (occurrence: IT)
  Receive Date: 20240320
  Receipt Date: 20240320
  Transmission Date: 20240410
  Serious: Yes (Hospitalization, Other)
  Sender: FDA-Public Use
  Company Number: IT-SUN PHARMACEUTICAL INDUSTRIES LTD-2024R1-437101

PATIENT
  Age: 46 Year
  Sex: Male

DRUGS (1)
  1. LITHIUM [Suspect]
     Active Substance: LITHIUM
     Indication: Bipolar disorder
     Dosage: UNK
     Route: 065

REACTIONS (7)
  - Altered state of consciousness [Unknown]
  - Altered state of consciousness [Unknown]
  - Electrocardiogram QT prolonged [Unknown]
  - Neurological decompensation [Unknown]
  - Renal injury [Unknown]
  - Respiratory failure [Unknown]
  - Toxicity to various agents [Unknown]
